FAERS Safety Report 20193030 (Version 1)
Quarter: 2021Q4

REPORT INFORMATION
  Report Type: Spontaneous
  Country: US (occurrence: US)
  Receive Date: 20211216
  Receipt Date: 20211216
  Transmission Date: 20220304
  Serious: Yes (Hospitalization, Other)
  Sender: FDA-Public Use
  Company Number: US-SUN PHARMACEUTICAL INDUSTRIES LTD-2021R1-320607

PATIENT
  Age: 85 Year
  Sex: Male

DRUGS (1)
  1. ASPIRIN [Suspect]
     Active Substance: ASPIRIN
     Indication: Product used for unknown indication
     Dosage: UNK, DAILY
     Route: 065

REACTIONS (5)
  - Aorto-oesophageal fistula [Recovering/Resolving]
  - Haematemesis [Unknown]
  - Weight decreased [Unknown]
  - Anal incontinence [Unknown]
  - Melaena [Unknown]
